FAERS Safety Report 11439595 (Version 1)
Quarter: 2015Q3

REPORT INFORMATION
  Report Type: Spontaneous
  Country: US (occurrence: US)
  Receive Date: 20150901
  Receipt Date: 20150901
  Transmission Date: 20151125
  Serious: No
  Sender: FDA-Public Use
  Company Number: US-ROCHE-1060455

PATIENT
  Age: 53 Year
  Sex: Female

DRUGS (7)
  1. FLUOXETINE [Concomitant]
     Active Substance: FLUOXETINE\FLUOXETINE HYDROCHLORIDE
  2. COPEGUS [Suspect]
     Active Substance: RIBAVIRIN
     Indication: CHRONIC HEPATITIS C
     Route: 048
     Dates: start: 20120412
  3. BACTRIM [Concomitant]
     Active Substance: SULFAMETHOXAZOLE\TRIMETHOPRIM
  4. COPEGUS [Suspect]
     Active Substance: RIBAVIRIN
     Route: 048
  5. PEGASYS [Suspect]
     Active Substance: PEGINTERFERON ALFA-2A
     Indication: CHRONIC HEPATITIS C
     Route: 058
     Dates: start: 20120412
  6. INCIVEK [Suspect]
     Active Substance: TELAPREVIR
     Indication: CHRONIC HEPATITIS C
     Route: 065
     Dates: start: 20120412, end: 20120704
  7. ASPIRIN. [Concomitant]
     Active Substance: ASPIRIN

REACTIONS (24)
  - Back pain [Unknown]
  - Unevaluable event [Unknown]
  - Dizziness [Unknown]
  - Nausea [Unknown]
  - Haemorrhoids [Unknown]
  - Increased upper airway secretion [Not Recovered/Not Resolved]
  - Anaemia [Unknown]
  - White blood cell count decreased [Unknown]
  - Anal pruritus [Unknown]
  - Excessive cerumen production [Unknown]
  - Skin exfoliation [Unknown]
  - Weight decreased [Unknown]
  - Chest discomfort [Unknown]
  - Proctalgia [Unknown]
  - Cough [Unknown]
  - Headache [Unknown]
  - Dry skin [Unknown]
  - Ear pain [Not Recovered/Not Resolved]
  - Productive cough [Unknown]
  - Pain in extremity [Unknown]
  - Decreased appetite [Unknown]
  - Abdominal discomfort [Unknown]
  - Eye pain [Unknown]
  - Limb discomfort [Unknown]

NARRATIVE: CASE EVENT DATE: 20120415
